FAERS Safety Report 5682630-2 (Version None)
Quarter: 2008Q1

REPORT INFORMATION
  Report Type: 
  Country: None (occurrence: None)
  Receive Date: 20080327
  Receipt Date: 20080111
  Transmission Date: 20080703
  Serious: No
  Sender: FDA-Public Use
  Company Number: US-BRISTOL-MYERS SQUIBB COMPANY-14038640

PATIENT
  Age: 55 Year
  Sex: Female
  Weight: 85 kg

DRUGS (7)
  1. ORENCIA [Suspect]
     Indication: RHEUMATOID ARTHRITIS
     Route: 042
     Dates: start: 20071214
  2. PREVACID [Concomitant]
  3. MULTI-VITAMIN [Concomitant]
  4. METHOTREXATE BRAND UNKNOWN [Concomitant]
  5. PREDNISONE TAB [Concomitant]
  6. ADVAIR DISKUS 100/50 [Concomitant]
  7. ALLERGY SHOTS [Concomitant]
     Indication: ALLERGY TO ANIMAL

REACTIONS (1)
  - SINUSITIS [None]
